FAERS Safety Report 23885327 (Version 1)
Quarter: 2024Q2

REPORT INFORMATION
  Report Type: Spontaneous
  Country: US (occurrence: US)
  Receive Date: 20240522
  Receipt Date: 20240522
  Transmission Date: 20240716
  Serious: No
  Sender: FDA-Public Use
  Company Number: US-BRISTOL-MYERS SQUIBB COMPANY-2024-079240

PATIENT
  Age: 65 Year
  Sex: Female

DRUGS (21)
  1. REVLIMID [Suspect]
     Active Substance: LENALIDOMIDE
     Indication: Plasma cell myeloma
     Route: 048
     Dates: start: 20240427
  2. ACETAMINOPHEN [Concomitant]
     Active Substance: ACETAMINOPHEN
     Indication: Product used for unknown indication
     Dosage: ER.?EVERY 8 HOURS AS NEEDED FOR PAIN.
     Route: 048
     Dates: start: 20231226
  3. ASPIRIN [Concomitant]
     Active Substance: ASPIRIN
     Indication: Product used for unknown indication
     Dosage: EC LOW DOSE.
     Route: 048
     Dates: start: 20240326
  4. GABAPENTIN [Concomitant]
     Active Substance: GABAPENTIN
     Indication: Product used for unknown indication
     Route: 048
     Dates: start: 20230912
  5. GABAPENTIN [Concomitant]
     Active Substance: GABAPENTIN
     Route: 048
     Dates: start: 20231105
  6. GABAPENTIN [Concomitant]
     Active Substance: GABAPENTIN
     Route: 048
     Dates: start: 20231226
  7. GABAPENTIN [Concomitant]
     Active Substance: GABAPENTIN
     Route: 048
  8. GABAPENTIN [Concomitant]
     Active Substance: GABAPENTIN
     Dosage: 12 HOURS.
     Route: 048
     Dates: start: 20231006
  9. GABAPENTIN [Concomitant]
     Active Substance: GABAPENTIN
     Route: 048
     Dates: start: 20240520
  10. NALOXONE [Concomitant]
     Active Substance: NALOXONE
     Indication: Product used for unknown indication
     Dosage: 4 MG/ 0.1 ML.?2 PACK.??CALL 911. SPRAY CONTENTS OF ONE ?SPRAYER(O. 1 ML) INTO ONE NOSTRIL REPEAT (N
     Dates: start: 20230805
  11. NEOMYCIN AND POLYMYXIN B SULFATES AND DEXAMETHASONE [Concomitant]
     Active Substance: DEXAMETHASONE\NEOMYCIN SULFATE\POLYMYXIN B SULFATE
     Indication: Product used for unknown indication
     Dosage: SHAKE LIQUID AND INSTILL 1 DROP IN BOTH EYES FOUR TIMES DAILY FOR 14 DAYS
     Dates: start: 20230301
  12. OXYCODONE AND ACETAMINOPHEN [Concomitant]
     Active Substance: ACETAMINOPHEN\OXYCODONE HYDROCHLORIDE
     Indication: Product used for unknown indication
     Dosage: 5-325 MG.?TAKE 1/2 TO 1 TABLET BY MOUTH EVERY 8 HOURS AS NEEDED FOR PAIN.
     Route: 048
     Dates: start: 20231010
  13. OXYCODONE AND ACETAMINOPHEN [Concomitant]
     Active Substance: ACETAMINOPHEN\OXYCODONE HYDROCHLORIDE
     Dosage: 5-325 MG.?TAKE 1/2 TO 1 TABLET BY MOUTH EVERY 8 HOURS AS NEEDED FOR PAIN.
     Route: 048
     Dates: start: 20230810
  14. POTASSIUM CHLORIDE [Concomitant]
     Active Substance: POTASSIUM CHLORIDE
     Indication: Product used for unknown indication
     Dosage: MICRO.?ER.
     Route: 048
     Dates: start: 20230531
  15. PROCHLORPERAZINE [Concomitant]
     Active Substance: PROCHLORPERAZINE
     Indication: Product used for unknown indication
     Dosage: AS NEED FOR NAUSEA.
     Route: 048
     Dates: start: 20230612
  16. ACETAMINOPHEN\TRAMADOL [Concomitant]
     Active Substance: ACETAMINOPHEN\TRAMADOL
     Indication: Product used for unknown indication
     Dosage: AS NEED FOR PAIN.
     Route: 048
     Dates: start: 20230801
  17. ACYCLOVIR [Concomitant]
     Active Substance: ACYCLOVIR
     Indication: Product used for unknown indication
  18. AMLODIPINE BESYLATE [Concomitant]
     Active Substance: AMLODIPINE BESYLATE
     Indication: Product used for unknown indication
  19. BISOPROLOL [Concomitant]
     Active Substance: BISOPROLOL\BISOPROLOL FUMARATE
     Indication: Product used for unknown indication
     Dosage: HCTZ.?2.5 MG/ 6.25 MG.
  20. IBANDRONATE SODIUM [Concomitant]
     Active Substance: IBANDRONATE SODIUM
     Indication: Product used for unknown indication
  21. ROSUVASTATIN [Concomitant]
     Active Substance: ROSUVASTATIN
     Indication: Product used for unknown indication

REACTIONS (1)
  - Pruritus [Unknown]

NARRATIVE: CASE EVENT DATE: 20240501
